FAERS Safety Report 5321630-9 (Version None)
Quarter: 2007Q1

REPORT INFORMATION
  Report Type: 
  Country: None (occurrence: None)
  Receive Date: 20070215
  Receipt Date: 20061016
  Transmission Date: 20070707
  Serious: No
  Sender: FDA-Public Use
  Company Number: 200616127BWH

PATIENT
  Age: 84 Year
  Sex: Female

DRUGS (1)
  1. NEXAVAR [Suspect]
     Indication: NEOPLASM MALIGNANT
     Dosage: 200 MG, QD, ORAL
     Route: 048
     Dates: start: 20061005

REACTIONS (1)
  - RASH [None]
